FAERS Safety Report 6048624-2 (Version None)
Quarter: 2009Q1

REPORT INFORMATION
  Report Type: 
  Country: None (occurrence: None)
  Receive Date: 20090123
  Receipt Date: 20090115
  Transmission Date: 20090719
  Serious: Yes (Life-Threatening, Hospitalization)
  Sender: FDA-Public Use
  Company Number: FR-AVENTIS-200910107FR

PATIENT
  Age: 58 Year
  Sex: Female

DRUGS (9)
  1. RIFINAH [Suspect]
     Route: 048
     Dates: start: 20080920, end: 20080922
  2. CARTREX [Suspect]
     Indication: DRUG USE FOR UNKNOWN INDICATION
     Route: 048
     Dates: start: 20080820, end: 20080914
  3. CARTREX [Suspect]
     Route: 048
     Dates: start: 20080920, end: 20081003
  4. OFLOCET                            /00731801/ [Suspect]
     Indication: ARTHRITIS
     Dates: start: 20080718, end: 20080829
  5. PYOSTACINE [Suspect]
     Indication: ARTHRITIS
     Dates: start: 20080718, end: 20080829
  6. LEVOTHYROX [Concomitant]
     Indication: DRUG USE FOR UNKNOWN INDICATION
     Route: 048
  7. COLCHICINE [Concomitant]
     Indication: DRUG USE FOR UNKNOWN INDICATION
     Route: 048
     Dates: start: 20080817, end: 20080830
  8. NEXEN [Concomitant]
     Indication: DRUG USE FOR UNKNOWN INDICATION
     Dates: start: 20080401, end: 20080601
  9. INIPOMP                            /01263201/ [Concomitant]

REACTIONS (6)
  - CHOLESTATIC LIVER INJURY [None]
  - DRUG RASH WITH EOSINOPHILIA AND SYSTEMIC SYMPTOMS [None]
  - EOSINOPHILIA [None]
  - HYPERSENSITIVITY [None]
  - PERICARDIAL EFFUSION [None]
  - PLEUROPERICARDITIS [None]
